FAERS Safety Report 17916412 (Version 1)
Quarter: 2020Q2

REPORT INFORMATION
  Report Type: Spontaneous
  Country: US (occurrence: US)
  Receive Date: 20200619
  Receipt Date: 20200619
  Transmission Date: 20200714
  Serious: Yes (Other)
  Sender: FDA-Public Use
  Company Number: US-ASTRAZENECA-2020SE75655

PATIENT
  Age: 678 Month
  Sex: Female
  Weight: 130.2 kg

DRUGS (2)
  1. BYDUREON [Suspect]
     Active Substance: EXENATIDE
     Indication: TYPE 2 DIABETES MELLITUS
     Route: 058
     Dates: start: 201912, end: 20200110
  2. BYDUREON [Suspect]
     Active Substance: EXENATIDE
     Indication: TYPE 2 DIABETES MELLITUS
     Route: 058
     Dates: start: 202002

REACTIONS (7)
  - Injection site bruising [Recovered/Resolved]
  - Injection site pain [Not Recovered/Not Resolved]
  - Thyroid cancer [Recovered/Resolved]
  - Injection site discomfort [Unknown]
  - Speech disorder [Not Recovered/Not Resolved]
  - Injection site mass [Recovering/Resolving]
  - Liquid product physical issue [Unknown]

NARRATIVE: CASE EVENT DATE: 201912
